FAERS Safety Report 11414579 (Version 2)
Quarter: 2015Q4

REPORT INFORMATION
  Report Type: Spontaneous
  Country: AU (occurrence: AU)
  Receive Date: 20150825
  Receipt Date: 20151228
  Transmission Date: 20160304
  Serious: Yes (Life-Threatening, Hospitalization)
  Sender: FDA-Public Use
  Company Number: AU-ROCHE-1621136

PATIENT
  Age: 73 Year
  Sex: Male

DRUGS (15)
  1. COLGOUT [Concomitant]
     Active Substance: COLCHICINE
  2. SOMAC [Concomitant]
     Active Substance: PANTOPRAZOLE SODIUM
  3. BICOR (AUSTRALIA) [Concomitant]
  4. HUMALOG [Concomitant]
     Active Substance: INSULIN LISPRO
  5. LANTUS [Concomitant]
     Active Substance: INSULIN GLARGINE
  6. GAZYVA [Suspect]
     Active Substance: OBINUTUZUMAB
     Indication: CHRONIC LYMPHOCYTIC LEUKAEMIA
     Dosage: FIRST DOSE: 8-10 ML, C1D1, DOSE INTERRUPTED
     Route: 042
  7. LIPEX (AUSTRALIA) [Concomitant]
  8. GAZYVA [Suspect]
     Active Substance: OBINUTUZUMAB
     Dosage: RESTARTED AT 12/5 MG/HOUR
     Route: 042
     Dates: start: 20150813
  9. COVERSYL [Concomitant]
     Active Substance: PERINDOPRIL
  10. ALDACTONE (AUSTRALIA) [Concomitant]
  11. SYMBICORT [Concomitant]
     Active Substance: BUDESONIDE\FORMOTEROL FUMARATE DIHYDRATE
  12. PROGOUT [Concomitant]
     Active Substance: ALLOPURINOL
  13. DIABEX [Concomitant]
     Active Substance: METFORMIN HYDROCHLORIDE
  14. GAZYVA [Suspect]
     Active Substance: OBINUTUZUMAB
     Dosage: 12.5 MG/HR
     Route: 042
     Dates: start: 20150814
  15. LANOXIN [Concomitant]
     Active Substance: DIGOXIN

REACTIONS (2)
  - Tumour lysis syndrome [Recovered/Resolved]
  - Infusion related reaction [Recovered/Resolved]
